FAERS Safety Report 8589768-0 (Version None)
Quarter: 2012Q3

REPORT INFORMATION
  Report Type: 
  Country: None (occurrence: None)
  Receive Date: 20120813
  Receipt Date: 20120806
  Transmission Date: 20120928
  Serious: Yes (Hospitalization, Other)
  Sender: FDA-Public Use
  Company Number: JP-VERTEX PHARMACEUTICALS INC.-AE-2012-009617

PATIENT
  Age: 80 Year
  Sex: Female

DRUGS (17)
  1. REBETOL [Concomitant]
     Indication: HEPATITIS C
     Route: 048
     Dates: start: 20120427, end: 20120524
  2. PEGINTERFERON ALFA-2B [Concomitant]
     Indication: HEPATITIS C
     Route: 058
     Dates: start: 20120427
  3. LANSOPRAZOLE [Concomitant]
     Route: 048
  4. BERIZYM [Concomitant]
     Route: 048
  5. MUCOSTA [Concomitant]
     Route: 048
     Dates: start: 20120427
  6. ANTEBATE OINTMENT [Concomitant]
     Route: 061
  7. AMLODIPINE [Concomitant]
     Route: 048
  8. TELAVIC [Suspect]
     Indication: HEPATITIS C
     Route: 048
     Dates: start: 20120427, end: 20120517
  9. AMINOMYLAN [Concomitant]
     Route: 048
  10. DIOVAN [Concomitant]
     Route: 048
  11. REBETOL [Concomitant]
     Route: 048
     Dates: start: 20120525
  12. LOXONIN [Concomitant]
     Route: 048
     Dates: start: 20120427
  13. MIROBECT [Concomitant]
     Route: 048
  14. ASPARA-CA [Concomitant]
     Route: 048
  15. ONEALFA [Concomitant]
     Route: 048
  16. DEXALTIN [Concomitant]
     Route: 061
  17. LIDOMEX [Concomitant]
     Route: 061

REACTIONS (3)
  - RENAL IMPAIRMENT [None]
  - PANCREATITIS [None]
  - ANAEMIA [None]
